FAERS Safety Report 13798528 (Version 1)
Quarter: 2017Q3

REPORT INFORMATION
  Report Type: Spontaneous
  Country: US (occurrence: US)
  Receive Date: 20170727
  Receipt Date: 20170727
  Transmission Date: 20171127
  Serious: No
  Sender: FDA-Public Use
  Company Number: None

PATIENT
  Age: 70 Year
  Sex: Female

DRUGS (5)
  1. LONSURF [Suspect]
     Active Substance: TIPIRACIL HYDROCHLORIDE\TRIFLURIDINE
     Indication: COLON CANCER
     Dosage: 2 TABLETS BID BY MOUTH ON DAYS 1-5 AND 8-12 OF CYCLE
     Route: 048
     Dates: start: 20170504
  2. FENTANYL. [Concomitant]
     Active Substance: FENTANYL
  3. TRANDOLAPRIL. [Concomitant]
     Active Substance: TRANDOLAPRIL
  4. LATANOPROST. [Concomitant]
     Active Substance: LATANOPROST
  5. GABAPENTIN. [Concomitant]
     Active Substance: GABAPENTIN

REACTIONS (2)
  - Abdominal pain [None]
  - Red blood cell count decreased [None]
